FAERS Safety Report 16643043 (Version 4)
Quarter: 2019Q4

REPORT INFORMATION
  Report Type: Report from Study
  Country: JP (occurrence: JP)
  Receive Date: 20190729
  Receipt Date: 20191206
  Transmission Date: 20200122
  Serious: Yes (Other)
  Sender: FDA-Public Use
  Company Number: JP-INCYTE CORPORATION-2019IN007630

PATIENT

DRUGS (13)
  1. JAKAVI [Suspect]
     Active Substance: RUXOLITINIB
     Indication: POLYCYTHAEMIA VERA
     Dosage: 5 MG, BID
     Route: 048
     Dates: start: 20161129, end: 20161208
  2. JAKAVI [Suspect]
     Active Substance: RUXOLITINIB
     Dosage: 5 MG, BID
     Route: 048
     Dates: start: 20170610, end: 20170616
  3. PREGABALIN. [Suspect]
     Active Substance: PREGABALIN
     Dosage: 75 MG, UNK
     Route: 048
     Dates: start: 20170728, end: 20170804
  4. JAKAVI [Suspect]
     Active Substance: RUXOLITINIB
     Dosage: 10 MG, BID
     Route: 048
     Dates: start: 20161209, end: 20170126
  5. FENTANYL CITRATE. [Concomitant]
     Active Substance: FENTANYL CITRATE
     Indication: NEURALGIA
     Dosage: 3-8 MG, UNK
     Route: 062
     Dates: end: 20170312
  6. JAKAVI [Suspect]
     Active Substance: RUXOLITINIB
     Dosage: 5 MG, BID
     Route: 048
     Dates: start: 20170127, end: 20170224
  7. JAKAVI [Suspect]
     Active Substance: RUXOLITINIB
     Dosage: 5 MG, BID
     Route: 048
     Dates: start: 20170628, end: 20181017
  8. DACARBAZINE + HYDROXYCARBAMIDE [Concomitant]
     Indication: POLYCYTHAEMIA VERA
     Dosage: 500 MG, UNK
     Route: 048
  9. JAKAVI [Suspect]
     Active Substance: RUXOLITINIB
     Dosage: 5 MG, QD
     Route: 048
     Dates: start: 20170225, end: 20170228
  10. JAKAVI [Suspect]
     Active Substance: RUXOLITINIB
     Dosage: 5 MG, BID
     Route: 048
     Dates: start: 20170308, end: 20170523
  11. JAKAVI [Suspect]
     Active Substance: RUXOLITINIB
     Dosage: 10 MG, BID
     Route: 048
     Dates: start: 20170524, end: 20170527
  12. PREGABALIN. [Suspect]
     Active Substance: PREGABALIN
     Indication: NEURALGIA
     Dosage: 50-150 MG, UNK
     Route: 048
     Dates: end: 20170309
  13. JAKAVI [Suspect]
     Active Substance: RUXOLITINIB
     Dosage: 5 MG, BID
     Route: 048
     Dates: start: 20181202, end: 20181211

REACTIONS (11)
  - Herpes zoster [Recovering/Resolving]
  - Pulmonary alveolar haemorrhage [Recovering/Resolving]
  - Polycythaemia vera [Unknown]
  - Colon cancer [Not Recovered/Not Resolved]
  - Chest discomfort [Recovered/Resolved]
  - Platelet count decreased [Recovering/Resolving]
  - Second primary malignancy [Not Recovered/Not Resolved]
  - Cardiac failure [Recovered/Resolved]
  - Oedema peripheral [Recovering/Resolving]
  - Anaemia [Recovering/Resolving]
  - Ear haemorrhage [Recovered/Resolved]

NARRATIVE: CASE EVENT DATE: 20170123
